FAERS Safety Report 15412784 (Version 1)
Quarter: 2018Q3

REPORT INFORMATION
  Report Type: Spontaneous
  Country: NL (occurrence: NL)
  Receive Date: 20180921
  Receipt Date: 20180921
  Transmission Date: 20181010
  Serious: Yes (Other)
  Sender: FDA-Public Use
  Company Number: NL-FERRINGPH-2018FE05115

PATIENT

DRUGS (2)
  1. FLORINEF ACETATE [Concomitant]
     Active Substance: FLUDROCORTISONE ACETATE
     Dosage: ()
  2. DESMOPRESSIN [Suspect]
     Active Substance: DESMOPRESSIN
     Indication: URINARY INCONTINENCE
     Dosage: 1/2 PER NIGHT (MG, DAILY)
     Route: 065
     Dates: start: 20180820

REACTIONS (5)
  - Product use issue [Unknown]
  - Product use in unapproved indication [Unknown]
  - Hypertension [Not Recovered/Not Resolved]
  - Off label use [Unknown]
  - Dizziness [Not Recovered/Not Resolved]

NARRATIVE: CASE EVENT DATE: 20180820
